FAERS Safety Report 5037812-X (Version None)
Quarter: 2006Q2

REPORT INFORMATION
  Report Type: 
  Country: None (occurrence: None)
  Receive Date: 20060628
  Receipt Date: 20060614
  Transmission Date: 20061013
  Serious: Yes (Hospitalization)
  Sender: FDA-Public Use
  Company Number: BE-BOEHRINGER INGELHEIM PHARMACEUTICALS, INC.-2006-BL-00148BL

PATIENT
  Sex: Male
  Weight: 47 kg

DRUGS (4)
  1. TPV/RTV CO-ADMIN [Suspect]
     Indication: HIV INFECTION
     Dosage: 1000/400 MG
     Route: 048
     Dates: start: 20050404
  2. FUZEON [Concomitant]
     Indication: HIV INFECTION
     Route: 058
     Dates: start: 20050404
  3. TRIZIVIR [Concomitant]
     Indication: HIV INFECTION
     Dosage: 300/300/150 MG X2/DAY
     Route: 048
     Dates: start: 20050404
  4. VIDEX [Concomitant]
     Indication: HIV INFECTION
     Route: 048
     Dates: start: 20050404

REACTIONS (3)
  - NYSTAGMUS [None]
  - PHOTOPHOBIA [None]
  - STRABISMUS [None]
